FAERS Safety Report 17985355 (Version 3)
Quarter: 2020Q4

REPORT INFORMATION
  Report Type: Report from Study
  Country: FR (occurrence: FR)
  Receive Date: 20200706
  Receipt Date: 20201009
  Transmission Date: 20210113
  Serious: Yes (Hospitalization)
  Sender: FDA-Public Use
  Company Number: FR-INTERCEPT-CT2020001340

PATIENT
  Age: 70 Year
  Sex: Female
  Weight: 71 kg

DRUGS (15)
  1. GLICLAZIDE [Concomitant]
     Active Substance: GLICLAZIDE
     Indication: TYPE 2 DIABETES MELLITUS
     Dosage: 60 MG, BID
     Route: 048
     Dates: start: 20190206
  2. ACETYLSALICYLIC ACID [Concomitant]
     Active Substance: ASPIRIN
     Indication: CAROTID ARTERY STENOSIS
     Dosage: 75 MG, QD
     Route: 048
     Dates: start: 2000
  3. DELURSAN [Concomitant]
     Active Substance: URSODIOL
     Indication: NON-ALCOHOLIC STEATOHEPATITIS
     Dosage: 250 MG, BID
     Route: 048
     Dates: start: 20120801
  4. PARACETAMOL [Concomitant]
     Active Substance: ACETAMINOPHEN
     Indication: PAIN PROPHYLAXIS
     Dosage: 1 G, PRN
     Route: 048
  5. OZEMPIC [Concomitant]
     Active Substance: SEMAGLUTIDE
     Indication: TYPE 2 DIABETES MELLITUS
     Dosage: 0.25 ML, QD
     Route: 058
     Dates: start: 20190521
  6. DIAMICRON [Concomitant]
     Active Substance: GLICLAZIDE
     Indication: TYPE 2 DIABETES MELLITUS
     Dosage: 120 MG, QD
     Route: 048
     Dates: start: 20200213
  7. OROCAL D3 [Concomitant]
     Active Substance: CALCIUM CARBONATE\CHOLECALCIFEROL
     Indication: RHEUMATOID ARTHRITIS
     Dosage: UNK TABLET, UNK
     Route: 048
  8. OBETICHOLIC ACID [Suspect]
     Active Substance: OBETICHOLIC ACID
     Indication: NON-ALCOHOLIC STEATOHEPATITIS
     Dosage: 25 MG, QD
     Route: 048
     Dates: start: 20170720
  9. METFORMIN [Concomitant]
     Active Substance: METFORMIN HYDROCHLORIDE
     Indication: TYPE 2 DIABETES MELLITUS
     Dosage: 1000 MG, BID
     Route: 048
     Dates: start: 1999
  10. ESOMEPRAZOLE. [Concomitant]
     Active Substance: ESOMEPRAZOLE MAGNESIUM
     Indication: GASTROOESOPHAGEAL REFLUX DISEASE
     Dosage: 40 MG, QD
     Route: 048
     Dates: start: 2000
  11. IRBESARTAN AND HYDROCHLOROTHIAZIDE [Concomitant]
     Active Substance: HYDROCHLOROTHIAZIDE\IRBESARTAN
     Indication: HYPERTENSION
     Dosage: 12.5/300 MG, QD
     Route: 048
     Dates: start: 1999
  12. CALCIUM W/COLECALCIFEROL [Concomitant]
     Active Substance: CALCIUM\CHOLECALCIFEROL
     Indication: RHEUMATOID ARTHRITIS
     Dosage: 1/800 G/IU, QD
     Route: 048
     Dates: start: 1993
  13. TOCO [Concomitant]
     Active Substance: .ALPHA.-TOCOPHEROL ACETATE, D-
     Indication: NON-ALCOHOLIC STEATOHEPATITIS
     Dosage: 500 MG, QD
     Route: 048
     Dates: start: 20121206
  14. PRAVASTATIN. [Concomitant]
     Active Substance: PRAVASTATIN
     Indication: DYSLIPIDAEMIA
     Dosage: 20 MG, QD
     Route: 048
     Dates: start: 20190521
  15. NATISPRAY [Concomitant]
     Active Substance: NITROGLYCERIN
     Indication: OESOPHAGEAL DISORDER
     Dosage: 1 PUFF, QD
     Route: 060
     Dates: start: 20191114

REACTIONS (2)
  - Type 2 diabetes mellitus [Recovered/Resolved]
  - Type 2 diabetes mellitus [Recovered/Resolved]

NARRATIVE: CASE EVENT DATE: 20200618
